FAERS Safety Report 7176922-8 (Version None)
Quarter: 2010Q4

REPORT INFORMATION
  Report Type: 
  Country: None (occurrence: None)
  Receive Date: 20101220
  Receipt Date: 20101210
  Transmission Date: 20110411
  Serious: Yes (Hospitalization)
  Sender: FDA-Public Use
  Company Number: NL-BAXTER-2010BH021373

PATIENT
  Age: 42 Year
  Sex: Female

DRUGS (35)
  1. GAMMAGARD LIQUID [Suspect]
     Indication: MULTIPLE SCLEROSIS
     Route: 042
     Dates: start: 20100806, end: 20100806
  2. GAMMAGARD LIQUID [Suspect]
     Indication: OFF LABEL USE
     Route: 042
     Dates: start: 20100806, end: 20100806
  3. GAMMAGARD LIQUID [Suspect]
     Route: 042
     Dates: start: 20100806, end: 20100806
  4. GAMMAGARD LIQUID [Suspect]
     Route: 042
     Dates: start: 20100806, end: 20100806
  5. GAMMAGARD LIQUID [Suspect]
     Route: 042
     Dates: start: 20100319
  6. GAMMAGARD LIQUID [Suspect]
     Route: 042
     Dates: start: 20100319
  7. GAMMAGARD LIQUID [Suspect]
     Route: 042
     Dates: start: 20100929, end: 20100929
  8. GAMMAGARD LIQUID [Suspect]
     Route: 042
     Dates: start: 20100929, end: 20100929
  9. GAMMAGARD LIQUID [Suspect]
     Route: 042
     Dates: start: 20100903, end: 20100903
  10. GAMMAGARD LIQUID [Suspect]
     Route: 042
     Dates: start: 20100903, end: 20100903
  11. GAMMAGARD LIQUID [Suspect]
     Route: 042
     Dates: start: 20101029, end: 20101029
  12. GAMMAGARD LIQUID [Suspect]
     Route: 042
     Dates: start: 20101029, end: 20101029
  13. GAMMAGARD LIQUID [Suspect]
     Route: 042
     Dates: start: 20100929, end: 20100929
  14. GAMMAGARD LIQUID [Suspect]
     Route: 042
     Dates: start: 20100929, end: 20100929
  15. GAMMAGARD LIQUID [Suspect]
     Route: 042
     Dates: start: 20101029, end: 20101029
  16. GAMMAGARD LIQUID [Suspect]
     Route: 042
     Dates: start: 20101029, end: 20101029
  17. GAMMAGARD LIQUID [Suspect]
     Route: 042
     Dates: start: 20101130, end: 20101130
  18. GAMMAGARD LIQUID [Suspect]
     Route: 042
     Dates: start: 20101130, end: 20101130
  19. GAMMAGARD LIQUID [Suspect]
     Route: 042
     Dates: start: 20101130, end: 20101130
  20. GAMMAGARD LIQUID [Suspect]
     Route: 042
     Dates: start: 20101130, end: 20101130
  21. BACLOFEN [Concomitant]
  22. RIVOTRIL [Concomitant]
  23. MOVICOLON [Concomitant]
  24. DUSPATAL [Concomitant]
  25. UBRETID [Concomitant]
  26. AMITRIPTYLINE [Concomitant]
  27. SIMVASTATIN [Concomitant]
  28. ESOMEPRAZOLE [Concomitant]
  29. PARACETAMOL [Concomitant]
  30. CELEBREX [Concomitant]
     Dates: end: 20100825
  31. TIZANIDINE [Concomitant]
     Dates: end: 20100910
  32. ANTIDEPRESSANTS [Concomitant]
  33. PANTOZOL [Concomitant]
  34. INDOMETACIN [Concomitant]
     Dates: start: 20100101
  35. ROPINIROLE [Concomitant]

REACTIONS (17)
  - ABDOMINAL DISTENSION [None]
  - BACK PAIN [None]
  - CONDITION AGGRAVATED [None]
  - CONSTIPATION [None]
  - DIZZINESS [None]
  - FATIGUE [None]
  - FEELING ABNORMAL [None]
  - GAIT DISTURBANCE [None]
  - HEADACHE [None]
  - HEMICEPHALALGIA [None]
  - HYPERHIDROSIS [None]
  - MALAISE [None]
  - NAUSEA [None]
  - NECK PAIN [None]
  - PAIN IN EXTREMITY [None]
  - PARAESTHESIA [None]
  - SENSATION OF HEAVINESS [None]
